FAERS Safety Report 9409258 (Version 2)
Quarter: 2013Q2

REPORT INFORMATION
  Report Type: Spontaneous
  Country: DE (occurrence: None)
  Receive Date: 20130415
  Receipt Date: 20130415
  Transmission Date: 20140414
  Serious: Yes (Life-Threatening, Hospitalization)
  Sender: FDA-Public Use
  Company Number: 2013-0890

PATIENT
  Age: 4 Year
  Sex: Male
  Weight: 12 kg

DRUGS (1)
  1. INCRELEX [Suspect]
     Indication: PRIMARY INSULIN LIKE GROWTH FACTOR-1 DEFICIENCY
     Dosage: 0.16 MG/KG (0.8MG/KG, 2 IN 1), SUBCUTANEOUS
     Route: 058
     Dates: start: 20111130, end: 20120103

REACTIONS (1)
  - Intestinal obstruction [None]
